FAERS Safety Report 8444196-3 (Version None)
Quarter: 2012Q2

REPORT INFORMATION
  Report Type: 
  Country: None (occurrence: None)
  Receive Date: 20120618
  Receipt Date: 20120608
  Transmission Date: 20120825
  Serious: Yes (Other)
  Sender: FDA-Public Use
  Company Number: GB-BAYER-2012-057138

PATIENT
  Age: 51 Year
  Sex: Female

DRUGS (1)
  1. QLAIRA FILM-COATED TABLETS [Suspect]
     Indication: ORAL CONTRACEPTION
     Dosage: 1 DF, QD
     Route: 048
     Dates: start: 20090925, end: 20120419

REACTIONS (1)
  - BREAST CANCER [None]
